FAERS Safety Report 5585752-X (Version None)
Quarter: 2007Q4

REPORT INFORMATION
  Report Type: 
  Country: None (occurrence: None)
  Receive Date: 20071204
  Receipt Date: 20070813
  Transmission Date: 20080405
  Serious: Yes (Other)
  Sender: FDA-Public Use
  Company Number: 07-075

PATIENT
  Sex: Female

DRUGS (1)
  1. IBUPROFEN TABLETS [Suspect]
     Dosage: 400MG (1/2 TAB) PRN

REACTIONS (3)
  - OEDEMA MOUTH [None]
  - RASH [None]
  - URTICARIA [None]
